FAERS Safety Report 9892290 (Version 2)
Quarter: 2014Q1

REPORT INFORMATION
  Report Type: Report from Study
  Country: DK (occurrence: DK)
  Receive Date: 20140212
  Receipt Date: 20140227
  Transmission Date: 20141002
  Serious: Yes (Hospitalization)
  Sender: FDA-Public Use
  Company Number: PHHY2014DK015216

PATIENT
  Age: 53 Year
  Sex: Male
  Weight: 90 kg

DRUGS (4)
  1. ACETYLSALICYLIC ACID [Suspect]
     Dosage: 300-500 MG, LOADING DOSE
     Route: 048
  2. ACETYLSALICYLIC ACID [Suspect]
     Dosage: 100 MG, QD
  3. EFIENT [Suspect]
     Indication: ACUTE CORONARY SYNDROME
     Dosage: 60 MG, ONCE/SINGLE
     Route: 048
     Dates: start: 20111202
  4. EFIENT [Suspect]
     Dosage: 10 MG, QD
     Route: 048
     Dates: start: 20111203

REACTIONS (3)
  - Epistaxis [Recovered/Resolved]
  - Haematemesis [Recovered/Resolved]
  - Faeces discoloured [Recovered/Resolved]
